FAERS Safety Report 9263069 (Version 1)
Quarter: 2013Q2

REPORT INFORMATION
  Report Type: Spontaneous
  Country: GB (occurrence: None)
  Receive Date: 20130425
  Receipt Date: 20130425
  Transmission Date: 20140414
  Serious: Yes (Hospitalization)
  Sender: FDA-Public Use
  Company Number: GB-DEXPHARM-20130169

PATIENT
  Age: 61 Year
  Sex: Female

DRUGS (3)
  1. LANSOPRAZOLE [Suspect]
     Indication: DYSPEPSIA
     Dates: start: 20130213, end: 20130306
  2. OMEPRAZOLE [Suspect]
     Indication: PRODUCT USED FOR UNKNOWN INDICATION
  3. IBUPROFEN [Suspect]
     Indication: MUSCULOSKELETAL PAIN

REACTIONS (7)
  - Abdominal pain lower [None]
  - Melaena [None]
  - Rash [None]
  - Fatigue [None]
  - Haematemesis [None]
  - Gastroduodenitis [None]
  - Constipation [None]
